FAERS Safety Report 24817181 (Version 1)
Quarter: 2025Q1

REPORT INFORMATION
  Report Type: Spontaneous
  Country: CN (occurrence: CN)
  Receive Date: 20250108
  Receipt Date: 20250108
  Transmission Date: 20250408
  Serious: Yes (Hospitalization, Other)
  Sender: WOCKHARDT LIMITED
  Company Number: CN-WOCKHARDT LIMITED-2024WLD000086

PATIENT
  Age: 3 Year
  Sex: Male

DRUGS (1)
  1. CEFTRIAXONE [Suspect]
     Active Substance: CEFTRIAXONE
     Indication: Bronchitis
     Route: 042

REACTIONS (5)
  - Myocardial injury [Recovering/Resolving]
  - Nephrolithiasis [Recovering/Resolving]
  - Autoimmune haemolytic anaemia [Recovering/Resolving]
  - Cholelithiasis [Recovering/Resolving]
  - Liver injury [Recovering/Resolving]
